FAERS Safety Report 4994778-6 (Version None)
Quarter: 2006Q1

REPORT INFORMATION
  Report Type: 
  Country: None (occurrence: None)
  Receive Date: 20060313
  Receipt Date: 20050601
  Transmission Date: 20060701
  Serious: Yes (Other)
  Sender: FDA-Public Use
  Company Number: PHEH2005US06024

PATIENT
  Age: 49 Year
  Sex: Female
  Weight: 27.2 kg

DRUGS (3)
  1. TRILEPTAL [Suspect]
     Indication: ALCOHOL WITHDRAWAL SYNDROME
     Dosage: 600 MG,BID
     Dates: start: 20050415, end: 20050415
  2. VALIUM [Concomitant]
  3. PAXIL [Concomitant]

REACTIONS (4)
  - PRURITUS [None]
  - RASH [None]
  - STEVENS-JOHNSON SYNDROME [None]
  - URTICARIA [None]
